FAERS Safety Report 5683915-6 (Version None)
Quarter: 2008Q1

REPORT INFORMATION
  Report Type: 
  Country: None (occurrence: None)
  Receive Date: 20080328
  Receipt Date: 20080320
  Transmission Date: 20080703
  Serious: Yes (Other)
  Sender: FDA-Public Use
  Company Number: PHEH2007US06674

PATIENT
  Age: 38 Year
  Sex: Female
  Weight: 79 kg

DRUGS (9)
  1. EXJADE [Suspect]
     Indication: IRON OVERLOAD
     Dosage: 2000MG, QD
     Route: 048
     Dates: start: 20060215, end: 20071003
  2. LANTUS [Concomitant]
  3. HUMALOG [Concomitant]
  4. SYNTHROID [Concomitant]
  5. ZOLOFT [Concomitant]
  6. VICODIN [Concomitant]
  7. ATIVAN [Concomitant]
  8. PHENERGAN HCL [Concomitant]
  9. FLUID/ELECTROLYTE REPLACEMENT THERAPY [Concomitant]
     Route: 042

REACTIONS (12)
  - BLOOD CREATININE INCREASED [None]
  - BLOOD PHOSPHORUS DECREASED [None]
  - BLOOD UREA INCREASED [None]
  - BLOOD URINE PRESENT [None]
  - DEHYDRATION [None]
  - HYPERGLYCAEMIA [None]
  - PROTEIN TOTAL INCREASED [None]
  - PROTEINURIA [None]
  - PYREXIA [None]
  - RENAL IMPAIRMENT [None]
  - SERUM FERRITIN INCREASED [None]
  - TACHYCARDIA [None]
